FAERS Safety Report 18701285 (Version 1)
Quarter: 2021Q1

REPORT INFORMATION
  Report Type: Spontaneous
  Country: US (occurrence: US)
  Receive Date: 20210104
  Receipt Date: 20210104
  Transmission Date: 20210419
  Serious: Yes (Other)
  Sender: FDA-Public Use
  Company Number: None

PATIENT
  Age: 45 Year
  Sex: Female
  Weight: 76.2 kg

DRUGS (2)
  1. METHIMAZOLE. [Suspect]
     Active Substance: METHIMAZOLE
     Indication: RASH
     Route: 048
     Dates: start: 2015
  2. METHIMAZOLE. [Suspect]
     Active Substance: METHIMAZOLE
     Indication: RASH
     Route: 048
     Dates: start: 2016

REACTIONS (1)
  - Rash [None]
